FAERS Safety Report 23477435 (Version 1)
Quarter: 2024Q1

REPORT INFORMATION
  Report Type: Report from Study
  Country: CA (occurrence: CA)
  Receive Date: 20240204
  Receipt Date: 20240204
  Transmission Date: 20240410
  Serious: No
  Sender: FDA-Public Use
  Company Number: CA-IPSEN Group, Research and Development-2023-16982

PATIENT
  Sex: Male

DRUGS (7)
  1. CABOMETYX [Suspect]
     Active Substance: CABOZANTINIB S-MALATE
     Indication: Thyroid cancer
     Dosage: 60 MG, QD
     Route: 048
     Dates: start: 20230116
  2. SYNTHROID [Concomitant]
     Active Substance: LEVOTHYROXINE SODIUM
     Dosage: 200MCG
  3. LASIX [Concomitant]
     Active Substance: FUROSEMIDE
  4. VITAMIN B12 [Concomitant]
     Active Substance: CYANOCOBALAMIN
     Dosage: 1000CMG
  5. SYMBICORT [Concomitant]
     Active Substance: BUDESONIDE\FORMOTEROL FUMARATE DIHYDRATE
     Dosage: BID
  6. LORAZEPAM [Concomitant]
     Active Substance: LORAZEPAM
  7. ALBUTEROL [Concomitant]
     Active Substance: ALBUTEROL

REACTIONS (8)
  - Sensitive skin [Recovered/Resolved]
  - Feeling cold [Recovered/Resolved]
  - Blister [Recovered/Resolved]
  - Skin exfoliation [Recovered/Resolved]
  - Gait disturbance [Recovered/Resolved]
  - Hair colour changes [Not Recovered/Not Resolved]
  - Alopecia [Recovered/Resolved]
  - Pain in extremity [Recovered/Resolved]
